FAERS Safety Report 10898965 (Version 2)
Quarter: 2015Q1

REPORT INFORMATION
  Report Type: Other
  Country: BR (occurrence: BR)
  Receive Date: 20150309
  Receipt Date: 20150326
  Transmission Date: 20150721
  Serious: Yes (Disabling, Other)
  Sender: FDA-Public Use
  Company Number: ALCN2014BR004743

PATIENT

DRUGS (1)
  1. PROPARACAINE HCL [Suspect]
     Active Substance: PROPARACAINE HYDROCHLORIDE
     Indication: INTRAOCULAR LENS IMPLANT
     Dosage: 2 GTT, UNK
     Route: 047
     Dates: start: 20140806, end: 20140806

REACTIONS (3)
  - Toxic anterior segment syndrome [Unknown]
  - Blindness [Unknown]
  - Corneal disorder [Unknown]

NARRATIVE: CASE EVENT DATE: 20140806
